FAERS Safety Report 19033982 (Version 1)
Quarter: 2021Q1

REPORT INFORMATION
  Report Type: Not Available
  Country: None (occurrence: None)
  Receive Date: 20210319
  Receipt Date: 20210319
  Transmission Date: 20210420
  Serious: No
  Sender: FDA-Public Use
  Company Number: US-AKORN-161974

PATIENT
  Age: 59 Year
  Sex: Female

DRUGS (1)
  1. EYTHROMYCIN (ERYTHROMYCIN) [Suspect]
     Active Substance: ERYTHROMYCIN

REACTIONS (2)
  - Rash [Recovered/Resolved]
  - Drug hypersensitivity [Recovered/Resolved]
